FAERS Safety Report 12892348 (Version 2)
Quarter: 2016Q4

REPORT INFORMATION
  Report Type: Report from Study
  Country: BE (occurrence: BE)
  Receive Date: 20161028
  Receipt Date: 20161109
  Transmission Date: 20170207
  Serious: Yes (Hospitalization, Other)
  Sender: FDA-Public Use
  Company Number: PHHY2016BE132995

PATIENT
  Age: 75 Year
  Sex: Female

DRUGS (2)
  1. AFINITOR [Suspect]
     Active Substance: EVEROLIMUS
     Indication: BREAST CANCER
     Dosage: 10 MG, QD
     Route: 048
     Dates: start: 20160906, end: 201610
  2. AFINITOR [Suspect]
     Active Substance: EVEROLIMUS
     Dosage: 5 MG, QD
     Route: 048
     Dates: start: 201610

REACTIONS (8)
  - Osteonecrosis of jaw [Unknown]
  - Wound [Recovering/Resolving]
  - Hypotension [Recovering/Resolving]
  - Ageusia [Recovering/Resolving]
  - Dehydration [Recovering/Resolving]
  - Gingival pain [Unknown]
  - Malaise [Recovering/Resolving]
  - Aphthous ulcer [Recovering/Resolving]

NARRATIVE: CASE EVENT DATE: 201610
